FAERS Safety Report 9264454 (Version 1)
Quarter: 2013Q2

REPORT INFORMATION
  Report Type: Spontaneous
  Country: MX (occurrence: MX)
  Receive Date: 20130501
  Receipt Date: 20130501
  Transmission Date: 20140414
  Serious: Yes (Hospitalization)
  Sender: FDA-Public Use
  Company Number: MX-B.I. PHARMACEUTICALS,INC./RIDGEFIELD-2013-MX-00156MX

PATIENT
  Age: 42 Year
  Sex: Male
  Weight: 65 kg

DRUGS (1)
  1. PRADAXAR [Suspect]
     Indication: SPINAL OPERATION
     Dosage: 220 MG
     Route: 048
     Dates: start: 20130330

REACTIONS (1)
  - Deep vein thrombosis [Not Recovered/Not Resolved]
